FAERS Safety Report 7087109-1 (Version None)
Quarter: 2010Q4

REPORT INFORMATION
  Report Type: 
  Country: None (occurrence: None)
  Receive Date: 20101106
  Receipt Date: 20101028
  Transmission Date: 20110411
  Serious: No
  Sender: FDA-Public Use
  Company Number: US-WYE-H18436010

PATIENT
  Age: 46 Year
  Sex: Female
  Weight: 56.75 kg

DRUGS (2)
  1. ADVIL [Suspect]
     Indication: PAIN IN EXTREMITY
     Dosage: 1 TABLET AS NEEDED
     Route: 048
     Dates: start: 20101024, end: 20101027
  2. SYNTHROID [Concomitant]

REACTIONS (2)
  - DYSPHAGIA [None]
  - FOREIGN BODY [None]
